FAERS Safety Report 10187794 (Version 2)
Quarter: 2014Q3

REPORT INFORMATION
  Report Type: Spontaneous
  Country: AU (occurrence: AU)
  Receive Date: 20140522
  Receipt Date: 20140822
  Transmission Date: 20150326
  Serious: Yes (Other)
  Sender: FDA-Public Use
  Company Number: AU-TEVA-482678ISR

PATIENT
  Age: 61 Year
  Sex: Male

DRUGS (8)
  1. MODAVIGIL [Suspect]
     Active Substance: MODAFINIL
     Indication: SOMNOLENCE
     Dosage: 100 MILLIGRAM DAILY;
     Route: 048
  2. DAONIL [Concomitant]
     Active Substance: GLYBURIDE
     Dosage: 2.5 MILLIGRAM DAILY;
     Route: 048
  3. PRAMIPEXOLE [Concomitant]
     Active Substance: PRAMIPEXOLE
     Dosage: NOCTE
     Route: 048
  4. NEBILET [Concomitant]
     Active Substance: NEBIVOLOL
     Indication: CARDIOMYOPATHY
     Dosage: 1.25 MILLIGRAM DAILY;
     Route: 048
  5. COVERSYL [Concomitant]
     Active Substance: PERINDOPRIL
     Dosage: 2.5 MILLIGRAM DAILY;
     Route: 048
  6. ASPIRIN. [Concomitant]
     Active Substance: ASPIRIN
     Route: 048
  7. CRESTOR [Concomitant]
     Active Substance: ROSUVASTATIN CALCIUM
     Dosage: 5 MILLIGRAM DAILY;
     Route: 048
  8. WARFARIN [Concomitant]
     Active Substance: WARFARIN
     Dosage: TO TARGET INR 2.0-5.0

REACTIONS (3)
  - Left ventricular hypertrophy [Unknown]
  - Atrial fibrillation [Not Recovered/Not Resolved]
  - Myocardial infarction [Unknown]

NARRATIVE: CASE EVENT DATE: 201311
